FAERS Safety Report 5499558-3 (Version None)
Quarter: 2007Q4

REPORT INFORMATION
  Report Type: 
  Country: None (occurrence: None)
  Receive Date: 20071026
  Receipt Date: 20071016
  Transmission Date: 20080405
  Serious: Yes (Hospitalization, Other)
  Sender: FDA-Public Use
  Company Number: DEWYE895221JUN07

PATIENT

DRUGS (3)
  1. VENLAFAXINE HCL [Suspect]
     Indication: DEPRESSION
     Dosage: 225 MG DAILY
     Route: 064
     Dates: start: 20070401
  2. VENLAFAXINE HCL [Suspect]
     Dosage: 75 MG PER DAY
     Route: 064
     Dates: end: 20070101
  3. ZOLPIDEM TARTRATE [Concomitant]
     Dosage: 5 MG DAILY
     Route: 064
     Dates: start: 20070301, end: 20070501

REACTIONS (6)
  - BRADYCARDIA NEONATAL [None]
  - CYANOSIS NEONATAL [None]
  - FOETAL MACROSOMIA [None]
  - PREMATURE BABY [None]
  - SCREAMING [None]
  - TREMOR NEONATAL [None]
